FAERS Safety Report 6419793-7 (Version None)
Quarter: 2009Q4

REPORT INFORMATION
  Report Type: 
  Country: None (occurrence: None)
  Receive Date: 20091029
  Receipt Date: 20091019
  Transmission Date: 20100525
  Serious: Yes (Hospitalization, Other)
  Sender: FDA-Public Use
  Company Number: JP-BAYER-200935885GPV

PATIENT
  Age: 67 Year
  Sex: Female

DRUGS (10)
  1. TICLOPIDINE HCL [Suspect]
     Indication: ARTERIAL STENOSIS
     Dates: start: 19990212, end: 19990701
  2. ASPIRIN [Suspect]
     Indication: ARTERIAL STENOSIS
     Dates: start: 19990413
  3. PROBUCOL [Concomitant]
     Indication: HYPERCHOLESTEROLAEMIA
     Dates: start: 19780101
  4. CHOLESTYRAMINE [Concomitant]
     Indication: HYPERCHOLESTEROLAEMIA
     Dates: start: 19780101
  5. ETHYL ICOSAPENTATE [Concomitant]
     Indication: HYPERCHOLESTEROLAEMIA
     Dates: start: 19961201
  6. PRAVASTATIN [Concomitant]
     Indication: HYPERCHOLESTEROLAEMIA
     Dates: start: 19970201
  7. CHOLESTYRAMINE [Concomitant]
     Dates: start: 19970301
  8. DILTIAZEM [Concomitant]
     Indication: ANGINA PECTORIS
     Dates: start: 19961101
  9. ISOSORBIDE DINITRATE [Concomitant]
     Indication: ANGINA PECTORIS
     Dates: start: 19961101
  10. NICORANDIL [Concomitant]
     Indication: ANGINA PECTORIS
     Dates: start: 19961101

REACTIONS (2)
  - DYSPNOEA [None]
  - INTERSTITIAL LUNG DISEASE [None]
